FAERS Safety Report 13533188 (Version 21)
Quarter: 2018Q4

REPORT INFORMATION
  Report Type: Report from Study
  Country: CA (occurrence: CA)
  Receive Date: 20170510
  Receipt Date: 20181219
  Transmission Date: 20190204
  Serious: Yes (Hospitalization, Other)
  Sender: FDA-Public Use
  Company Number: PHHY2017CA062370

PATIENT
  Age: 46 Year
  Sex: Male

DRUGS (5)
  1. LOPERAMIDE [Concomitant]
     Active Substance: LOPERAMIDE
     Indication: PRODUCT USED FOR UNKNOWN INDICATION
     Dosage: 2-4 MG, PRN
     Route: 048
  2. PROCHLORPERAZINE. [Concomitant]
     Active Substance: PROCHLORPERAZINE
     Indication: PRODUCT USED FOR UNKNOWN INDICATION
     Dosage: 10 MG, Q6H PRN
     Route: 048
  3. AFINITOR [Suspect]
     Active Substance: EVEROLIMUS
     Indication: PANCREATIC NEUROENDOCRINE TUMOUR
     Dosage: 10 MG, QD
     Route: 048
     Dates: start: 20170411
  4. SANDOSTATIN LAR DEPOT [Suspect]
     Active Substance: OCTREOTIDE ACETATE
     Indication: CARCINOID TUMOUR
     Dosage: 30 MG, QMO (EVERY 4 WEEKS)
     Route: 030
     Dates: start: 20170502
  5. AMLODIPINE [Suspect]
     Active Substance: AMLODIPINE BESYLATE
     Indication: PRODUCT USED FOR UNKNOWN INDICATION
     Dosage: UNK
     Route: 048

REACTIONS (20)
  - Bowel movement irregularity [Unknown]
  - Abdominal pain [Unknown]
  - Abscess [Unknown]
  - Pain [Unknown]
  - Myalgia [Unknown]
  - Blood pressure increased [Unknown]
  - Abdominal distension [Unknown]
  - Stress [Unknown]
  - Swelling [Unknown]
  - Constipation [Unknown]
  - Dizziness [Unknown]
  - Tachycardia [Recovering/Resolving]
  - Increased appetite [Unknown]
  - Weight decreased [Unknown]
  - Headache [Unknown]
  - Dry mouth [Unknown]
  - Back pain [Unknown]
  - Flatulence [Unknown]
  - Mouth ulceration [Unknown]
  - Oedema peripheral [Unknown]

NARRATIVE: CASE EVENT DATE: 201704
